FAERS Safety Report 8500527 (Version 3)
Quarter: 2013Q2

REPORT INFORMATION
  Report Type: Spontaneous
  Country: PT (occurrence: PT)
  Receive Date: 20120409
  Receipt Date: 20130416
  Transmission Date: 20140414
  Serious: Yes (Other)
  Sender: FDA-Public Use
  Company Number: PT-ROCHE-1054492

PATIENT
  Age: 39 Year
  Sex: Female
  Weight: 53.07 kg

DRUGS (5)
  1. XOLAIR [Suspect]
     Indication: ASTHMA
     Route: 065
     Dates: start: 20111107
  2. XOLAIR [Suspect]
     Route: 065
     Dates: start: 2009
  3. FLUTICASONE PROPIONATE/SALMETEROL [Concomitant]
  4. IPRATROPIUM BROMIDE [Concomitant]
  5. LEVOCETIRIZINE [Concomitant]

REACTIONS (1)
  - Asthma [Recovered/Resolved]
